FAERS Safety Report 7307890-3 (Version None)
Quarter: 2011Q1

REPORT INFORMATION
  Report Type: 
  Country: None (occurrence: None)
  Receive Date: 20110223
  Receipt Date: 20110211
  Transmission Date: 20110831
  Serious: Yes (Hospitalization)
  Sender: FDA-Public Use
  Company Number: GB-SANOFI-AVENTIS-2011SA009353

PATIENT
  Age: 64 Year

DRUGS (4)
  1. 5-FU [Suspect]
     Dates: start: 20101215, end: 20101215
  2. OXALIPLATIN [Suspect]
     Dates: start: 20101215, end: 20101215
  3. FOLINIC ACID [Suspect]
  4. BEVACIZUMAB [Suspect]
     Dates: start: 20101215, end: 20101215

REACTIONS (1)
  - HAEMORRHAGIC STROKE [None]
